FAERS Safety Report 21395492 (Version 1)
Quarter: 2022Q3

REPORT INFORMATION
  Report Type: Spontaneous
  Country: US (occurrence: US)
  Receive Date: 20220930
  Receipt Date: 20220930
  Transmission Date: 20221027
  Serious: Yes (Other)
  Sender: FDA-Public Use
  Company Number: US-009507513-2209USA010217

PATIENT
  Age: 77 Year
  Sex: Male

DRUGS (1)
  1. KEYTRUDA [Suspect]
     Active Substance: PEMBROLIZUMAB
     Indication: Gastrointestinal melanoma
     Dosage: 10 SIX WEEK TREATMENT

REACTIONS (4)
  - Proctectomy [Unknown]
  - Colostomy [Unknown]
  - Asthenia [Unknown]
  - Feeling abnormal [Unknown]
